FAERS Safety Report 18769831 (Version 1)
Quarter: 2021Q1

REPORT INFORMATION
  Report Type: Spontaneous
  Country: US (occurrence: US)
  Receive Date: 20210121
  Receipt Date: 20210121
  Transmission Date: 20210419
  Serious: Yes (Other)
  Sender: FDA-Public Use
  Company Number: US-BAYER-2021-030099

PATIENT
  Age: 39 Year
  Sex: Female

DRUGS (1)
  1. MIRENA [Suspect]
     Active Substance: LEVONORGESTREL
     Indication: POLYMENORRHAGIA
     Dosage: 20?G PER DAY, CONTINUOUSLY
     Route: 015
     Dates: start: 201702

REACTIONS (2)
  - Genital haemorrhage [None]
  - Device dislocation [Not Recovered/Not Resolved]
